FAERS Safety Report 17880778 (Version 1)
Quarter: 2020Q2

REPORT INFORMATION
  Report Type: Spontaneous
  Country: IN (occurrence: IN)
  Receive Date: 20200610
  Receipt Date: 20200610
  Transmission Date: 20200714
  Serious: Yes (Other)
  Sender: FDA-Public Use
  Company Number: IN-MYLANLABS-2020M1055713

PATIENT
  Age: 50 Year
  Sex: Female

DRUGS (5)
  1. VERAPAMIL [Suspect]
     Active Substance: VERAPAMIL HYDROCHLORIDE
     Indication: ACCELERATED IDIOVENTRICULAR RHYTHM
     Dosage: 10 MILLIGRAM
     Route: 042
  2. ADENOSINE. [Suspect]
     Active Substance: ADENOSINE
     Indication: ACCELERATED IDIOVENTRICULAR RHYTHM
     Dosage: 12 MILLIGRAM
     Route: 042
  3. METOPROLOL SUCCINATE. [Concomitant]
     Active Substance: METOPROLOL SUCCINATE
     Indication: PRODUCT USED FOR UNKNOWN INDICATION
     Dosage: 50 MILLIGRAM, QD
     Route: 065
  4. METOPROLOL. [Suspect]
     Active Substance: METOPROLOL
     Indication: ACCELERATED IDIOVENTRICULAR RHYTHM
     Dosage: 10 MILLIGRAM
     Route: 042
  5. AMIODARONE [Concomitant]
     Active Substance: AMIODARONE
     Indication: PRODUCT USED FOR UNKNOWN INDICATION
     Dosage: 200 MILLIGRAM, QD
     Route: 065

REACTIONS (1)
  - Drug ineffective [Unknown]
